FAERS Safety Report 24439374 (Version 2)
Quarter: 2024Q4

REPORT INFORMATION
  Report Type: Spontaneous
  Country: US (occurrence: US)
  Receive Date: 20241015
  Receipt Date: 20241031
  Transmission Date: 20250115
  Serious: Yes (Death, Hospitalization, Other)
  Sender: BRISTOL-MYERS SQUIBB COMPANY
  Company Number: US-BRISTOL-MYERS SQUIBB COMPANY-2024-161836

PATIENT
  Age: 76 Year
  Sex: Male
  Weight: 109 kg

DRUGS (14)
  1. ELIQUIS [Suspect]
     Active Substance: APIXABAN
     Indication: Atrial fibrillation
     Route: 048
     Dates: start: 20230629
  2. ALBUTEROL [Concomitant]
     Active Substance: ALBUTEROL
     Indication: Product used for unknown indication
     Dosage: 90 UNIT NOT REPORTED
     Route: 055
     Dates: start: 20230726
  3. UROXATRAL [Concomitant]
     Active Substance: ALFUZOSIN HYDROCHLORIDE
     Indication: Product used for unknown indication
     Route: 048
     Dates: start: 20230726
  4. ALVESCO [Concomitant]
     Active Substance: CICLESONIDE
     Indication: Product used for unknown indication
     Dosage: 220 UNIT NOT REPORTED
     Route: 055
     Dates: start: 20230726
  5. SYNTHROID [Concomitant]
     Active Substance: LEVOTHYROXINE SODIUM
     Indication: Product used for unknown indication
     Dosage: 75 UNIT NOT REPORTED
     Route: 048
     Dates: start: 20230803
  6. K PHOS NEUTRAL [Concomitant]
     Active Substance: POTASSIUM PHOSPHATE, MONOBASIC\SODIUM PHOSPHATE, DIBASIC, ANHYDROUS\SODIUM PHOSPHATE, MONOBASIC, MON
     Indication: Product used for unknown indication
     Route: 048
     Dates: start: 20230807
  7. LORATADINE [Concomitant]
     Active Substance: LORATADINE
     Indication: Product used for unknown indication
     Route: 048
     Dates: start: 20240103
  8. DELTASONE [Concomitant]
     Active Substance: PREDNISONE
     Indication: Colitis
     Route: 048
     Dates: start: 20240916, end: 20240916
  9. DELTASONE [Concomitant]
     Active Substance: PREDNISONE
     Route: 048
     Dates: start: 20240912
  10. RENFLEXIS [Concomitant]
     Active Substance: INFLIXIMAB-ABDA
     Indication: Colitis
     Route: 042
     Dates: start: 20240916, end: 20240916
  11. METHYLPREDNISOLONE SODIUM SUCCINATE [Concomitant]
     Active Substance: METHYLPREDNISOLONE SODIUM SUCCINATE
     Indication: Colitis
     Route: 042
     Dates: start: 20240916, end: 20240916
  12. SOLU-MEDROL [Concomitant]
     Active Substance: METHYLPREDNISOLONE SODIUM SUCCINATE
     Indication: Colitis
     Route: 042
     Dates: start: 20240917, end: 20240917
  13. SOLU-MEDROL [Concomitant]
     Active Substance: METHYLPREDNISOLONE SODIUM SUCCINATE
     Route: 042
     Dates: start: 20240917, end: 20240917
  14. NIVOLUMAB [Concomitant]
     Active Substance: NIVOLUMAB
     Indication: Head and neck cancer
     Dates: start: 20240723, end: 20240821

REACTIONS (1)
  - Tumour haemorrhage [Fatal]

NARRATIVE: CASE EVENT DATE: 20240917
